FAERS Safety Report 13610949 (Version 1)
Quarter: 2017Q2

REPORT INFORMATION
  Report Type: Spontaneous
  Country: US (occurrence: US)
  Receive Date: 20170603
  Receipt Date: 20170603
  Transmission Date: 20170830
  Serious: No
  Sender: FDA-Public Use
  Company Number: None

PATIENT
  Age: 43 Year
  Sex: Female
  Weight: 80.81 kg

DRUGS (1)
  1. PARAGARD T 380A [Suspect]
     Active Substance: COPPER

REACTIONS (9)
  - Abdominal pain lower [None]
  - Implant site pain [None]
  - Pelvic pain [None]
  - Procedural pain [None]
  - Back pain [None]
  - Muscle spasms [None]
  - Secretion discharge [None]
  - Tenderness [None]
  - Ovarian disorder [None]

NARRATIVE: CASE EVENT DATE: 20170523
